FAERS Safety Report 22041265 (Version 1)
Quarter: 2023Q1

REPORT INFORMATION
  Report Type: Spontaneous
  Country: US (occurrence: None)
  Receive Date: 20230224
  Receipt Date: 20230224
  Transmission Date: 20230418
  Serious: No
  Sender: FDA-Public Use
  Company Number: None

PATIENT
  Age: 67 Year
  Sex: Male
  Weight: 105.23 kg

DRUGS (2)
  1. LENVIMA [Suspect]
     Active Substance: LENVATINIB
     Indication: Renal neoplasm
     Dates: start: 20230128
  2. LENVIMA [Suspect]
     Active Substance: LENVATINIB
     Indication: Metastases to kidney

REACTIONS (5)
  - Nausea [None]
  - Dehydration [None]
  - Fatigue [None]
  - Diarrhoea [None]
  - Throat irritation [None]

NARRATIVE: CASE EVENT DATE: 20220829
